FAERS Safety Report 6316129-7 (Version None)
Quarter: 2009Q4

REPORT INFORMATION
  Report Type: 
  Country: None (occurrence: None)
  Receive Date: 20090820
  Receipt Date: 20090811
  Transmission Date: 20100525
  Serious: Yes (Hospitalization)
  Sender: FDA-Public Use
  Company Number: PHHY2009AT34157

PATIENT
  Age: 79 Year
  Sex: Female
  Weight: 57 kg

DRUGS (7)
  1. VOLTAREN [Suspect]
     Dosage: 25 MG, PRN
     Route: 048
  2. TRITAZIDE [Suspect]
     Dosage: 5MG/25MG ONCE DAILY
     Route: 048
  3. ACTONEL WITH CALCIUM (COPACKAGED) [Concomitant]
     Dosage: 35 MG, QW
     Route: 048
  4. ERYCYTOL [Concomitant]
     Dosage: 1 MG, QMO
  5. MICARDIS [Concomitant]
     Dosage: 40 MG, QD
     Route: 048
  6. PARIET [Concomitant]
     Dosage: 10 MG, QD
  7. VALMANE [Concomitant]
     Dosage: 2X1 DAILY

REACTIONS (1)
  - HYPONATRAEMIA [None]
